FAERS Safety Report 9659117 (Version 6)
Quarter: 2014Q2

REPORT INFORMATION
  Report Type: Report from Study
  Country: PE (occurrence: PE)
  Receive Date: 20131031
  Receipt Date: 20140604
  Transmission Date: 20141212
  Serious: Yes (Disabling, Other)
  Sender: FDA-Public Use
  Company Number: PE-ROCHE-1297490

PATIENT
  Age: 10 Year
  Sex: Male

DRUGS (2)
  1. ACTEMRA [Suspect]
     Indication: JUVENILE IDIOPATHIC ARTHRITIS
     Dosage: LAST DOSE ON 28/OCT/2013
     Route: 042
     Dates: start: 20130717, end: 201311
  2. ACTEMRA [Suspect]
     Dosage: LAST DOSE ON 19/FEB/2014.
     Route: 042

REACTIONS (8)
  - Abasia [Not Recovered/Not Resolved]
  - Spinal deformity [Not Recovered/Not Resolved]
  - Back pain [Not Recovered/Not Resolved]
  - Scoliosis [Not Recovered/Not Resolved]
  - Nasopharyngitis [Recovering/Resolving]
  - Spinal deformity [Not Recovered/Not Resolved]
  - Rash [Not Recovered/Not Resolved]
  - Arthritis [Not Recovered/Not Resolved]
